FAERS Safety Report 13644177 (Version 3)
Quarter: 2017Q3

REPORT INFORMATION
  Report Type: Report from Study
  Country: US (occurrence: US)
  Receive Date: 20170612
  Receipt Date: 20170725
  Transmission Date: 20171127
  Serious: Yes (Hospitalization)
  Sender: FDA-Public Use
  Company Number: US-ACTELION-A-US2015-126396

PATIENT
  Age: 44 Year
  Sex: Male
  Weight: 58.96 kg

DRUGS (5)
  1. VELETRI [Suspect]
     Active Substance: EPOPROSTENOL
     Dosage: 52 NG/KG, PER MIN
     Route: 042
  2. SILDENAFIL. [Concomitant]
     Active Substance: SILDENAFIL
  3. VELETRI [Suspect]
     Active Substance: EPOPROSTENOL
     Dosage: 85 NG/KG, PER MIN
     Route: 042
     Dates: start: 20110315
  4. VELETRI [Suspect]
     Active Substance: EPOPROSTENOL
     Indication: PULMONARY ARTERIAL HYPERTENSION
     Dosage: 55 NG/KG, PER MIN
     Route: 042
  5. LETAIRIS [Concomitant]
     Active Substance: AMBRISENTAN

REACTIONS (9)
  - Pain in jaw [Unknown]
  - Dizziness [Unknown]
  - Sepsis [Unknown]
  - Transplant evaluation [Unknown]
  - Confusional state [Unknown]
  - Liver disorder [Unknown]
  - Diarrhoea [Unknown]
  - Vision blurred [Unknown]
  - Ascites [Unknown]
